FAERS Safety Report 5492755-2 (Version None)
Quarter: 2007Q4

REPORT INFORMATION
  Report Type: 
  Country: None (occurrence: None)
  Receive Date: 20071023
  Receipt Date: 20071012
  Transmission Date: 20080405
  Serious: Yes (Congenital Anomaly)
  Sender: FDA-Public Use
  Company Number: PHNU2007RO03443

PATIENT
  Age: 1 Day
  Sex: Male
  Weight: 3.8 kg

DRUGS (1)
  1. LEPONEX [Suspect]
     Dosage: MATERNAL DOSE: 200MG/DAY
     Route: 064

REACTIONS (3)
  - ATRIAL SEPTAL DEFECT [None]
  - DRUG EXPOSURE DURING PREGNANCY [None]
  - PATENT DUCTUS ARTERIOSUS [None]
